FAERS Safety Report 5216172-5 (Version None)
Quarter: 2007Q1

REPORT INFORMATION
  Report Type: 
  Country: None (occurrence: None)
  Receive Date: 20070123
  Receipt Date: 20070109
  Transmission Date: 20070707
  Serious: Yes (Other)
  Sender: FDA-Public Use
  Company Number: US-ELI_LILLY_AND_COMPANY-US200701001938

PATIENT
  Age: 10 Year
  Sex: Male

DRUGS (7)
  1. STRATTERA [Suspect]
     Indication: MOOD SWINGS
     Dosage: 40 MG, DAILY (1/D)
     Dates: start: 20060601
  2. PROZAC [Suspect]
     Indication: MOOD SWINGS
     Dosage: 20 MG, DAILY (1/D)
     Dates: start: 20060601
  3. SEROQUEL [Concomitant]
     Dosage: UNK UNK, DAILY (1/D)
  4. FISH OIL [Concomitant]
  5. SINGULAIR ^MERCK FROSST^ [Concomitant]
  6. ALBUTEROL [Concomitant]
  7. SINGULAIR [Concomitant]

REACTIONS (3)
  - AMINO ACID LEVEL ABNORMAL [None]
  - CONDUCT DISORDER [None]
  - HYPOGLYCAEMIA [None]
